FAERS Safety Report 10765638 (Version 1)
Quarter: 2015Q1

REPORT INFORMATION
  Report Type: Spontaneous
  Country: JP (occurrence: JP)
  Receive Date: 20150205
  Receipt Date: 20150205
  Transmission Date: 20150721
  Serious: Yes (Other)
  Sender: FDA-Public Use
  Company Number: JP-ELI_LILLY_AND_COMPANY-JP201502000028

PATIENT
  Age: 85 Year
  Sex: Female
  Weight: 42.9 kg

DRUGS (1)
  1. CYMBALTA [Suspect]
     Active Substance: DULOXETINE HYDROCHLORIDE
     Indication: DEPRESSION
     Dosage: UNK
     Route: 048

REACTIONS (4)
  - Blood sodium decreased [Recovering/Resolving]
  - Hypophagia [Unknown]
  - Inappropriate antidiuretic hormone secretion [Unknown]
  - Depressed level of consciousness [Unknown]
